FAERS Safety Report 8892964 (Version 1)
Quarter: 2012Q4

REPORT INFORMATION
  Report Type: Spontaneous
  Country: GB (occurrence: None)
  Receive Date: 20121101
  Receipt Date: 20121101
  Transmission Date: 20130627
  Serious: Yes (Other)
  Sender: FDA-Public Use
  Company Number: CN-ACCORD-015029

PATIENT
  Sex: Male

DRUGS (1)
  1. LETROZOLE [Suspect]

REACTIONS (2)
  - Off label use [None]
  - Malignant neoplasm progression [None]
